FAERS Safety Report 17587033 (Version 2)
Quarter: 2020Q4

REPORT INFORMATION
  Report Type: Spontaneous
  Country: US (occurrence: US)
  Receive Date: 20200326
  Receipt Date: 20201202
  Transmission Date: 20210113
  Serious: No
  Sender: FDA-Public Use
  Company Number: US-SA-2020SA074409

PATIENT

DRUGS (1)
  1. CEREZYME [Suspect]
     Active Substance: IMIGLUCERASE
     Indication: GAUCHER^S DISEASE
     Dosage: 3600 U, QOW
     Route: 063
     Dates: start: 20150819

REACTIONS (1)
  - Maternal exposure during breast feeding [Unknown]

NARRATIVE: CASE EVENT DATE: 2020
